FAERS Safety Report 5854867-0 (Version None)
Quarter: 2008Q3

REPORT INFORMATION
  Report Type: 
  Country: None (occurrence: None)
  Receive Date: 20080822
  Receipt Date: 20080218
  Transmission Date: 20090109
  Serious: No
  Sender: FDA-Public Use
  Company Number: US-ABBOTT-08P-163-0438814-00

PATIENT
  Age: 26 Year
  Sex: Female

DRUGS (3)
  1. SYNTHROID [Suspect]
     Indication: HYPOTHYROIDISM
     Route: 048
     Dates: start: 20060401, end: 20070801
  2. SYNTHROID [Suspect]
     Dates: start: 20080201
  3. LIOTHYRONINE SODIUM [Suspect]
     Indication: HYPOTHYROIDISM
     Route: 048
     Dates: end: 20080201

REACTIONS (4)
  - ANAEMIA [None]
  - BLOOD THYROID STIMULATING HORMONE ABNORMAL [None]
  - OEDEMA [None]
  - PROTEIN TOTAL DECREASED [None]
